FAERS Safety Report 18417655 (Version 1)
Quarter: 2020Q4

REPORT INFORMATION
  Report Type: Spontaneous
  Country: US (occurrence: US)
  Receive Date: 20201022
  Receipt Date: 20201022
  Transmission Date: 20210114
  Serious: No
  Sender: FDA-Public Use
  Company Number: US-SEATTLE GENETICS-2020SGN03475

PATIENT
  Sex: Female

DRUGS (6)
  1. ENHERTU [Concomitant]
     Active Substance: FAM-TRASTUZUMAB DERUXTECAN-NXKI
     Indication: BREAST CANCER FEMALE
     Dosage: Q3WEEKS
  2. TUKYSA [Suspect]
     Active Substance: TUCATINIB
     Dosage: 150 MG, BID
     Dates: start: 20200914
  3. TUKYSA [Suspect]
     Active Substance: TUCATINIB
     Indication: BREAST CANCER FEMALE
     Dosage: UNK
     Dates: start: 20200728
  4. TUKYSA [Suspect]
     Active Substance: TUCATINIB
     Dosage: 2 DF, BID
  5. XELODA [Suspect]
     Active Substance: CAPECITABINE
     Indication: BREAST CANCER FEMALE
  6. XELODA [Suspect]
     Active Substance: CAPECITABINE
     Dosage: 1500 MG IN AM, 1000 MG IN PM X14 DAYS, 7 OFF
     Dates: start: 20200919

REACTIONS (14)
  - Abdominal pain [Unknown]
  - Flatulence [Unknown]
  - Nausea [Unknown]
  - Fatigue [Unknown]
  - Dehydration [Unknown]
  - Dyspepsia [Unknown]
  - Feeling abnormal [Unknown]
  - Decreased appetite [Unknown]
  - Diarrhoea [Unknown]
  - Product use issue [Unknown]
  - Asthenia [Unknown]
  - Weight decreased [Unknown]
  - Vomiting [Unknown]
  - Product dose omission issue [Unknown]
